FAERS Safety Report 7919068-0 (Version None)
Quarter: 2011Q4

REPORT INFORMATION
  Report Type: 
  Country: None (occurrence: None)
  Receive Date: 20111116
  Receipt Date: 20111107
  Transmission Date: 20120403
  Serious: Yes (Other)
  Sender: FDA-Public Use
  Company Number: CA-ASTRAZENECA-2011SE67356

PATIENT
  Age: 46 Year
  Sex: Male

DRUGS (4)
  1. ARTHROTEC [Concomitant]
     Route: 065
  2. REMICADE [Suspect]
     Route: 042
  3. CRESTOR [Suspect]
     Route: 048
  4. ALLOPURINOL [Concomitant]
     Route: 065

REACTIONS (3)
  - COLITIS [None]
  - CONDITION AGGRAVATED [None]
  - THERAPEUTIC RESPONSE DECREASED [None]
